FAERS Safety Report 26123847 (Version 1)
Quarter: 2025Q4

REPORT INFORMATION
  Report Type: Spontaneous
  Country: JP (occurrence: JP)
  Receive Date: 20251205
  Receipt Date: 20251205
  Transmission Date: 20260117
  Serious: Yes (Other)
  Sender: ACCORD
  Company Number: JP-Accord-515427

PATIENT

DRUGS (4)
  1. CLOZAPINE [Suspect]
     Active Substance: CLOZAPINE
     Route: 064
  2. INSULIN NOS [Concomitant]
     Active Substance: INSULIN NOS
     Route: 064
  3. MAGNESIUM OXIDE [Concomitant]
     Active Substance: MAGNESIUM OXIDE
     Route: 064
  4. LORAZEPAM [Concomitant]
     Active Substance: LORAZEPAM
     Route: 064

REACTIONS (2)
  - Foetal heart rate decreased [Recovering/Resolving]
  - Foetal hypokinesia [Recovered/Resolved]
